FAERS Safety Report 9747083 (Version 2)
Quarter: 2014Q1

REPORT INFORMATION
  Report Type: Spontaneous
  Country: US (occurrence: US)
  Receive Date: 20131211
  Receipt Date: 20140311
  Transmission Date: 20141002
  Serious: Yes (Hospitalization)
  Sender: FDA-Public Use
  Company Number: US-GILEAD-2013-0089837

PATIENT
  Age: 55 Year
  Sex: Female

DRUGS (7)
  1. LETAIRIS [Suspect]
     Indication: PULMONARY ARTERIAL HYPERTENSION
     Dosage: 5 MG, QD
     Route: 048
     Dates: start: 20110315
  2. LISINOPRIL [Concomitant]
  3. METOPROLOL [Concomitant]
  4. CYMBALTA [Concomitant]
  5. GABAPENTIN [Concomitant]
  6. OMEPRAZOLE [Concomitant]
  7. ADCIRCA [Concomitant]

REACTIONS (1)
  - Eye infection [Recovered/Resolved]
